FAERS Safety Report 17533117 (Version 1)
Quarter: 2020Q1

REPORT INFORMATION
  Report Type: Spontaneous
  Country: FR (occurrence: FR)
  Receive Date: 20200312
  Receipt Date: 20200312
  Transmission Date: 20200409
  Serious: Yes (Hospitalization)
  Sender: FDA-Public Use
  Company Number: FR-MYLANLABS-2020M1026019

PATIENT
  Age: 15 Year
  Sex: Female
  Weight: 70 kg

DRUGS (2)
  1. DESLORATADINE. [Suspect]
     Active Substance: DESLORATADINE
     Indication: PRODUCT USED FOR UNKNOWN INDICATION
     Dosage: 15 DOSAGE FORM
     Route: 048
     Dates: start: 20200118, end: 20200118
  2. PARACETAMOL [Suspect]
     Active Substance: ACETAMINOPHEN
     Indication: PRODUCT USED FOR UNKNOWN INDICATION
     Dosage: 14 GRAM
     Route: 048
     Dates: start: 20200118, end: 20200118

REACTIONS (3)
  - Somnolence [Recovered/Resolved]
  - Toxicity to various agents [Unknown]
  - Analgesic drug level increased [Recovered/Resolved]

NARRATIVE: CASE EVENT DATE: 20200118
